FAERS Safety Report 19767888 (Version 1)
Quarter: 2021Q3

REPORT INFORMATION
  Report Type: Spontaneous
  Country: US (occurrence: US)
  Receive Date: 20210830
  Receipt Date: 20210830
  Transmission Date: 20211014
  Serious: Yes (Other)
  Sender: FDA-Public Use
  Company Number: US-TAKEDA-2021TUS053035

PATIENT
  Sex: Female

DRUGS (3)
  1. LIALDA [Suspect]
     Active Substance: MESALAMINE
     Indication: PRODUCT USED FOR UNKNOWN INDICATION
     Route: 065
  2. HUMIRA [Suspect]
     Active Substance: ADALIMUMAB
     Indication: COLITIS ULCERATIVE
     Dosage: UNK
     Route: 058
     Dates: start: 2011, end: 2016
  3. HUMIRA [Suspect]
     Active Substance: ADALIMUMAB
     Dosage: 160 MILLIGRAM
     Route: 058
     Dates: start: 20210806, end: 20210806

REACTIONS (2)
  - Colitis ulcerative [Not Recovered/Not Resolved]
  - Drug ineffective [Unknown]

NARRATIVE: CASE EVENT DATE: 2019
